FAERS Safety Report 19684360 (Version 1)
Quarter: 2021Q3

REPORT INFORMATION
  Report Type: Spontaneous
  Country: US (occurrence: US)
  Receive Date: 20210810
  Receipt Date: 20210810
  Transmission Date: 20211014
  Serious: Yes (Hospitalization, Disabling)
  Sender: FDA-Public Use
  Company Number: None

PATIENT
  Age: 30 Year
  Sex: Female
  Weight: 49.5 kg

DRUGS (3)
  1. GADAVIST [Suspect]
     Active Substance: GADOBUTROL
     Indication: MAGNETIC RESONANCE IMAGING SPINAL
     Route: 042
     Dates: start: 20201027
  2. PRENATAL VITAMIN [Concomitant]
     Active Substance: VITAMINS
  3. GADAVIST [Suspect]
     Active Substance: GADOBUTROL
     Indication: MAGNETIC RESONANCE IMAGING ABDOMINAL
     Route: 042
     Dates: start: 20201027

REACTIONS (8)
  - Bone pain [None]
  - Tremor [None]
  - Palpitations [None]
  - Dysphagia [None]
  - Hypoaesthesia [None]
  - Muscle contractions involuntary [None]
  - Myalgia [None]
  - Electric shock sensation [None]

NARRATIVE: CASE EVENT DATE: 20201027
